FAERS Safety Report 9557801 (Version 2)
Quarter: 2013Q4

REPORT INFORMATION
  Report Type: Report from Study
  Country: US (occurrence: US)
  Receive Date: 20130724
  Receipt Date: 20131129
  Transmission Date: 20140711
  Serious: Yes (Other)
  Sender: FDA-Public Use
  Company Number: PHEH2013US007182

PATIENT
  Age: 63 Year
  Sex: Female

DRUGS (9)
  1. GILENYA [Suspect]
     Dosage: 0.5 MG, QD
     Route: 048
  2. LEVOTHYROXINE [Concomitant]
  3. AMANTADINE [Concomitant]
  4. AMBIEN [Concomitant]
  5. CYMBALTA [Concomitant]
  6. METAXALONE [Concomitant]
  7. NEURONTIN [Concomitant]
  8. TOPAMAX [Concomitant]
  9. KAPPA [Concomitant]

REACTIONS (4)
  - Blood thyroid stimulating hormone decreased [Unknown]
  - Influenza like illness [Recovered/Resolved]
  - Alopecia [Not Recovered/Not Resolved]
  - White blood cell count decreased [Unknown]
